FAERS Safety Report 13360009 (Version 1)
Quarter: 2017Q1

REPORT INFORMATION
  Report Type: Spontaneous
  Country: CD (occurrence: CD)
  Receive Date: 20170322
  Receipt Date: 20170322
  Transmission Date: 20170429
  Serious: Yes (Death)
  Sender: FDA-Public Use
  Company Number: CD-JNJFOC-20170317520

PATIENT
  Age: 26 Year
  Sex: Male

DRUGS (13)
  1. ISONIAZID. [Concomitant]
     Active Substance: ISONIAZID
     Indication: TUBERCULOSIS
     Dates: start: 20160823
  2. LEVOFLOXACIN. [Concomitant]
     Active Substance: LEVOFLOXACIN
     Indication: TUBERCULOSIS
     Dates: start: 20160823
  3. RANITIDINE HYDROCHLORIDE. [Concomitant]
     Active Substance: RANITIDINE HYDROCHLORIDE
     Indication: PRODUCT USED FOR UNKNOWN INDICATION
  4. BEDAQUILINE [Suspect]
     Active Substance: BEDAQUILINE
     Indication: TUBERCULOSIS
     Dosage: 4 TABS(400MG)/DAY FOR 14 DAYS AND 2 TABS(200MG)/DAY 3 TIMES A WEEK
     Route: 048
     Dates: start: 20160823
  5. LINEZOLID. [Concomitant]
     Active Substance: LINEZOLID
     Indication: TUBERCULOSIS
     Dates: start: 20160823
  6. TRANXENE T-TAB [Concomitant]
     Active Substance: CLORAZEPATE DIPOTASSIUM
     Indication: PRODUCT USED FOR UNKNOWN INDICATION
  7. COTRIMOXAZOL [Concomitant]
     Active Substance: SULFAMETHOXAZOLE\TRIMETHOPRIM
     Indication: PRODUCT USED FOR UNKNOWN INDICATION
  8. DUOVIR [Concomitant]
     Indication: PRODUCT USED FOR UNKNOWN INDICATION
  9. BEDAQUILINE [Suspect]
     Active Substance: BEDAQUILINE
     Indication: TUBERCULOSIS
     Route: 048
  10. PYRAZINAMIDE. [Concomitant]
     Active Substance: PYRAZINAMIDE
     Indication: TUBERCULOSIS
     Dates: start: 20160823
  11. CLOFAZIMINE [Concomitant]
     Active Substance: CLOFAZIMINE
     Indication: TUBERCULOSIS
     Dates: start: 20160823
  12. TENOFOVIR [Concomitant]
     Active Substance: TENOFOVIR
     Indication: PRODUCT USED FOR UNKNOWN INDICATION
  13. AMIKACIN [Concomitant]
     Active Substance: AMIKACIN
     Indication: TUBERCULOSIS
     Dates: start: 20160823

REACTIONS (2)
  - Pyrexia [Unknown]
  - Chronic respiratory failure [Fatal]

NARRATIVE: CASE EVENT DATE: 20161001
